FAERS Safety Report 12860603 (Version 2)
Quarter: 2022Q1

REPORT INFORMATION
  Report Type: Report from Study
  Country: US (occurrence: None)
  Receive Date: 20161019
  Receipt Date: 20220331
  Transmission Date: 20220423
  Serious: Yes (Hospitalization)
  Sender: FDA-Public Use
  Company Number: US-ROCHE-1843262

PATIENT
  Age: 85 Year
  Sex: Female

DRUGS (3)
  1. AVASTIN [Suspect]
     Active Substance: BEVACIZUMAB
     Indication: Hormone receptor positive breast cancer
     Dosage: OVER 30-90 MIN ON DAY 1?COURSE 1?START DATE OF AE COURSE: 18/FEB/2010 (COURSE 2)?CYCLE: 3 WEEKS
     Route: 042
     Dates: start: 20100128
  2. LETROZOLE [Suspect]
     Active Substance: LETROZOLE
     Indication: Hormone receptor positive breast cancer
     Dosage: PO QD ON DAYS 1-21
     Route: 048
     Dates: start: 20100128
  3. ZOMETA [Suspect]
     Active Substance: ZOLEDRONIC ACID
     Indication: Product used for unknown indication
     Route: 065

REACTIONS (8)
  - Acute kidney injury [Unknown]
  - Decreased appetite [Unknown]
  - Dehydration [Unknown]
  - Diarrhoea [Unknown]
  - Fatigue [Recovered/Resolved]
  - Nausea [Unknown]
  - Vomiting [Unknown]
  - Pericardial effusion [Unknown]

NARRATIVE: CASE EVENT DATE: 20100223
